FAERS Safety Report 25984008 (Version 1)
Quarter: 2025Q4

REPORT INFORMATION
  Report Type: Spontaneous
  Country: EU (occurrence: EU)
  Receive Date: 20251031
  Receipt Date: 20251031
  Transmission Date: 20260117
  Serious: Yes (Congenital Anomaly, Other)
  Sender: SANDOZ
  Company Number: None

PATIENT
  Age: 29 Week
  Sex: Female
  Weight: 1.227 kg

DRUGS (7)
  1. BISOPROLOL [Suspect]
     Active Substance: BISOPROLOL
     Indication: Product used for unknown indication
     Dosage: UNK
     Route: 064
  2. DAPAGLIFLOZIN [Suspect]
     Active Substance: DAPAGLIFLOZIN
     Indication: Heart failure with reduced ejection fraction
     Dosage: 10 MG
     Route: 064
     Dates: start: 20230710, end: 20250903
  3. HYDROXYUREA [Suspect]
     Active Substance: HYDROXYUREA
     Indication: Polycythaemia vera
     Dosage: 1000 MG, QD
     Route: 064
     Dates: start: 20230804, end: 20250903
  4. IRBESARTAN [Suspect]
     Active Substance: IRBESARTAN
     Indication: Heart failure with reduced ejection fraction
     Dosage: 300 MG, QD
     Route: 064
     Dates: start: 20230710, end: 20250902
  5. LANSOPRAZOLE [Suspect]
     Active Substance: LANSOPRAZOLE
     Indication: Product used for unknown indication
     Dosage: UNK
     Route: 064
  6. LEVETIRACETAM [Suspect]
     Active Substance: LEVETIRACETAM
     Indication: Product used for unknown indication
     Dosage: UNK
     Route: 064
  7. XARELTO [Suspect]
     Active Substance: RIVAROXABAN
     Indication: Cerebrovascular accident
     Dosage: 20 MG, QD
     Route: 064
     Dates: start: 20241031, end: 20250902

REACTIONS (4)
  - Trisomy 21 [Not Recovered/Not Resolved]
  - Foetal growth restriction [Not Recovered/Not Resolved]
  - Premature baby [Not Recovered/Not Resolved]
  - Maternal exposure during pregnancy [Recovered/Resolved]

NARRATIVE: CASE EVENT DATE: 20250227
